FAERS Safety Report 14842987 (Version 1)
Quarter: 2018Q2

REPORT INFORMATION
  Report Type: Spontaneous
  Country: RU (occurrence: RU)
  Receive Date: 20180503
  Receipt Date: 20180503
  Transmission Date: 20180711
  Serious: Yes (Hospitalization, Other)
  Sender: FDA-Public Use
  Company Number: RU-GLAXOSMITHKLINE-RU2018GSK076371

PATIENT
  Age: 71 Year

DRUGS (4)
  1. DICLOFENAC (DICLOFENAC) [Suspect]
     Active Substance: DICLOFENAC
     Indication: BURSITIS
  2. DICLOFENAC (DICLOFENAC) [Suspect]
     Active Substance: DICLOFENAC
     Indication: TENOSYNOVITIS
     Dosage: 150 MG, QD
  3. PANTOPRAZOLE [Suspect]
     Active Substance: PANTOPRAZOLE
     Indication: TENOSYNOVITIS
     Dosage: 40 MG, QD
  4. PANTOPRAZOLE [Suspect]
     Active Substance: PANTOPRAZOLE
     Indication: BURSITIS

REACTIONS (3)
  - Chest pain [Unknown]
  - Myocardial infarction [Unknown]
  - Electrocardiogram ST segment elevation [Unknown]
